FAERS Safety Report 4401342-6 (Version None)
Quarter: 2004Q3

REPORT INFORMATION
  Report Type: 
  Country: None (occurrence: None)
  Receive Date: 20040907
  Receipt Date: 20040318
  Transmission Date: 20050211
  Serious: No
  Sender: FDA-Public Use
  Company Number: US-BRISTOL-MYERS SQUIBB COMPANY-12536777

PATIENT
  Age: 58 Year
  Sex: Female
  Weight: 61 kg

DRUGS (7)
  1. COUMADIN [Suspect]
     Indication: HEART VALVE REPLACEMENT
     Dosage: DOSAGE: INITIAL 1 MG/DAY, INCR TO 2MG/D SEP-03, THEN TO 3.5MG/D 2 WKS AGO.
     Route: 048
     Dates: start: 20030701
  2. METOPROLOL [Concomitant]
  3. LASIX [Concomitant]
  4. POTASSIUM [Concomitant]
  5. CAPTOPRIL [Concomitant]
  6. FLEXERIL [Concomitant]
  7. DARVOCET [Concomitant]

REACTIONS (1)
  - ALOPECIA [None]
